FAERS Safety Report 4315679-2 (Version None)
Quarter: 2004Q1

REPORT INFORMATION
  Report Type: 
  Country: None (occurrence: None)
  Receive Date: 20040310
  Receipt Date: 20040305
  Transmission Date: 20041129
  Serious: Yes (Hospitalization)
  Sender: FDA-Public Use
  Company Number: KII-2002-0007401

PATIENT
  Age: 78 Year
  Sex: Female

DRUGS (2)
  1. UNIPHYL [Suspect]
     Indication: RESPIRATORY TRACT INFECTION
     Dosage: 400 MG, BID
  2. BIAXIN [Suspect]
     Indication: RESPIRATORY TRACT INFECTION

REACTIONS (4)
  - DRUG LEVEL INCREASED [None]
  - HEART RATE INCREASED [None]
  - MEDICATION ERROR [None]
  - PRESCRIBED OVERDOSE [None]
